FAERS Safety Report 8185608-2 (Version None)
Quarter: 2012Q1

REPORT INFORMATION
  Report Type: 
  Country: None (occurrence: None)
  Receive Date: 20120305
  Receipt Date: 20120223
  Transmission Date: 20120608
  Serious: Yes (Hospitalization)
  Sender: FDA-Public Use
  Company Number: US-BAXTER-2012BH005222

PATIENT
  Sex: Female

DRUGS (2)
  1. DIANEAL [Suspect]
     Indication: PERITONEAL DIALYSIS
     Route: 033
     Dates: start: 20100101, end: 20120217
  2. DIANEAL [Suspect]
     Indication: PERITONEAL DIALYSIS
     Route: 033
     Dates: start: 20100101, end: 20120217

REACTIONS (5)
  - ULTRAFILTRATION FAILURE [None]
  - WEIGHT INCREASED [None]
  - VASCULAR INSUFFICIENCY [None]
  - ABDOMINAL DISTENSION [None]
  - PAIN IN EXTREMITY [None]
